FAERS Safety Report 11402036 (Version 1)
Quarter: 2015Q3

REPORT INFORMATION
  Report Type: Spontaneous
  Country: US (occurrence: US)
  Receive Date: 20150821
  Receipt Date: 20150821
  Transmission Date: 20151125
  Serious: No
  Sender: FDA-Public Use
  Company Number: US-ROCHE-1377666

PATIENT
  Sex: Female

DRUGS (3)
  1. RIBAVIRIN. [Suspect]
     Active Substance: RIBAVIRIN
     Indication: CHRONIC HEPATITIS C
     Dosage: DIVIDED DOSES (600/400)
     Route: 065
     Dates: start: 20140326
  2. PEGASYS [Suspect]
     Active Substance: PEGINTERFERON ALFA-2A
     Indication: CHRONIC HEPATITIS C
     Route: 058
     Dates: start: 20140326
  3. SOVALDI [Suspect]
     Active Substance: SOFOSBUVIR
     Indication: CHRONIC HEPATITIS C
     Route: 065
     Dates: start: 20140326

REACTIONS (10)
  - Decreased appetite [Unknown]
  - Pain [Unknown]
  - Fatigue [Unknown]
  - Dry mouth [Unknown]
  - Ear pain [Unknown]
  - Agitation [Unknown]
  - Hyperhidrosis [Unknown]
  - Oral mucosal blistering [Unknown]
  - Oropharyngeal pain [Unknown]
  - Vomiting [Unknown]
